FAERS Safety Report 17631601 (Version 2)
Quarter: 2020Q2

REPORT INFORMATION
  Report Type: Spontaneous
  Country: US (occurrence: US)
  Receive Date: 20200406
  Receipt Date: 20200514
  Transmission Date: 20200713
  Serious: Yes (Other)
  Sender: FDA-Public Use
  Company Number: US-JNJFOC-20200345030

PATIENT
  Age: 50 Year
  Sex: Female

DRUGS (3)
  1. INVOKANA [Suspect]
     Active Substance: CANAGLIFLOZIN
     Route: 048
     Dates: start: 20170111, end: 20170315
  2. INVOKANA [Suspect]
     Active Substance: CANAGLIFLOZIN
     Indication: TYPE 2 DIABETES MELLITUS
     Route: 048
     Dates: start: 20150302
  3. INVOKANA [Suspect]
     Active Substance: CANAGLIFLOZIN
     Route: 048
     Dates: start: 20150511

REACTIONS (6)
  - Toe amputation [Unknown]
  - Osteomyelitis [Recovering/Resolving]
  - Diabetic foot infection [Recovering/Resolving]
  - Cellulitis [Recovering/Resolving]
  - Drug ineffective [Unknown]
  - Diabetic foot [Recovering/Resolving]

NARRATIVE: CASE EVENT DATE: 20150326
